FAERS Safety Report 4466256-4 (Version None)
Quarter: 2004Q4

REPORT INFORMATION
  Report Type: 
  Country: None (occurrence: None)
  Receive Date: 20041005
  Receipt Date: 20040924
  Transmission Date: 20050328
  Serious: Yes (Other)
  Sender: FDA-Public Use
  Company Number: JP-JNJFOC-20040902833

PATIENT
  Age: 75 Year
  Sex: Male

DRUGS (2)
  1. TAVANIC* [Suspect]
     Indication: CELLULITIS
     Dosage: FIRST DOSE IV STAT, SECOND AND SUBSEQUANT TREATMENT WITH 500MG/DAY
     Route: 042
     Dates: start: 20040802
  2. TAVANIC [Suspect]
     Dosage: 1 TABLET
     Route: 049
     Dates: start: 20040802, end: 20040806

REACTIONS (5)
  - ARTHROPOD BITE [None]
  - DIPLOPIA [None]
  - HETEROPHORIA [None]
  - NEUROTOXICITY [None]
  - VISION BLURRED [None]
